FAERS Safety Report 9293002 (Version 2)
Quarter: 2013Q2

REPORT INFORMATION
  Report Type: Spontaneous
  Country: US (occurrence: US)
  Receive Date: 20130516
  Receipt Date: 20130628
  Transmission Date: 20140414
  Serious: Yes (Death, Hospitalization)
  Sender: FDA-Public Use
  Company Number: US-GLAXOSMITHKLINE-A1023546A

PATIENT
  Age: 44 Year
  Sex: Female
  Weight: 87.7 kg

DRUGS (3)
  1. BENLYSTA [Suspect]
     Indication: SYSTEMIC LUPUS ERYTHEMATOSUS
     Dosage: 900MG MONTHLY
     Route: 042
     Dates: start: 201207, end: 201304
  2. PREDNISONE [Concomitant]
  3. PLAQUENIL [Concomitant]

REACTIONS (7)
  - Pneumonia pneumococcal [Fatal]
  - Sepsis [Fatal]
  - Septic shock [Fatal]
  - Multi-organ failure [Fatal]
  - Wound [Unknown]
  - Infection [Unknown]
  - Cough [Unknown]
